FAERS Safety Report 13837626 (Version 2)
Quarter: 2017Q3

REPORT INFORMATION
  Report Type: Spontaneous
  Country: US (occurrence: US)
  Receive Date: 20170805
  Receipt Date: 20170829
  Transmission Date: 20171127
  Serious: No
  Sender: FDA-Public Use
  Company Number: US-009507513-1708USA001762

PATIENT

DRUGS (2)
  1. NEXPLANON [Suspect]
     Active Substance: ETONOGESTREL
     Dosage: 68M 1 ROD / 3 YEARS
     Route: 059
  2. NEXPLANON [Suspect]
     Active Substance: ETONOGESTREL
     Dosage: 68MG 1 ROD / 3 YEARS
     Route: 059

REACTIONS (2)
  - No adverse event [Unknown]
  - Device deployment issue [Recovered/Resolved]
